FAERS Safety Report 5838104-9 (Version None)
Quarter: 2008Q3

REPORT INFORMATION
  Report Type: 
  Country: None (occurrence: None)
  Receive Date: 20080808
  Receipt Date: 20080731
  Transmission Date: 20090109
  Serious: Yes (Hospitalization)
  Sender: FDA-Public Use
  Company Number: US-JNJFOC-20080800488

PATIENT
  Sex: Female

DRUGS (6)
  1. INVEGA [Suspect]
     Route: 048
  2. INVEGA [Suspect]
     Indication: HALLUCINATION
     Route: 048
  3. INVEGA [Suspect]
     Indication: HALLUCINATION, VISUAL
     Route: 048
  4. INVEGA [Suspect]
     Indication: DRUG THERAPY
     Route: 048
  5. SEROQUEL [Concomitant]
     Indication: SLEEP DISORDER
     Dosage: 25-50 MG
  6. NEURONTIN [Concomitant]
     Indication: ANXIETY

REACTIONS (8)
  - ABASIA [None]
  - APHASIA [None]
  - ASTHENIA [None]
  - BLUNTED AFFECT [None]
  - HYPOKINESIA [None]
  - MENTAL STATUS CHANGES [None]
  - MUSCLE RIGIDITY [None]
  - MUSCLE TWITCHING [None]
